FAERS Safety Report 8271310-5 (Version None)
Quarter: 2012Q2

REPORT INFORMATION
  Report Type: 
  Country: None (occurrence: None)
  Receive Date: 20120410
  Receipt Date: 20120405
  Transmission Date: 20120825
  Serious: Yes (Other)
  Sender: FDA-Public Use
  Company Number: US-BAYER-201041815NA

PATIENT
  Age: 73 Year
  Sex: Male
  Weight: 80 kg

DRUGS (30)
  1. TRASYLOL [Suspect]
     Indication: CORONARY ARTERY BYPASS
     Dosage: 200 ML LOADING DOSE
     Route: 042
     Dates: start: 20061116, end: 20061116
  2. METOPROLOL TARTRATE [Concomitant]
     Dosage: 100 MG TWICE
     Route: 048
  3. GLYBURIDE [Concomitant]
     Dosage: 5MG THREE TIMES DAILY
     Route: 048
  4. CALCIUM CARBONATE [Concomitant]
     Dosage: 500MG THREE TIMES DAILY
     Route: 048
  5. EPINEPHRINE [Concomitant]
     Dosage: UNK
     Dates: start: 20061116
  6. TRASYLOL [Suspect]
     Dosage: 200 ML BOLUS
     Dates: start: 20061116, end: 20061116
  7. HYDRALAZINE HCL [Concomitant]
     Dosage: 25MG THREE TIMES DAILY
     Route: 048
  8. DOBUTAMINE HCL [Concomitant]
     Dosage: UNK
     Route: 042
     Dates: start: 20061116
  9. PROCRIT [Concomitant]
     Dosage: UNK
     Route: 042
     Dates: start: 20061115, end: 20061115
  10. FENTANYL CITRATE [Concomitant]
     Dosage: UNK
     Dates: start: 20061116
  11. TRASYLOL [Suspect]
     Dosage: 50 ML, Q1HR
     Dates: start: 20061116, end: 20061116
  12. GLIPIZIDE [Concomitant]
     Dosage: 20MG DAILY
     Route: 048
  13. PHENYLEPHRINE HCL [Concomitant]
     Dosage: UNK
     Dates: start: 20061116
  14. TRASYLOL [Suspect]
     Indication: AORTIC VALVE REPLACEMENT
     Dosage: 1 ML, TEST DOSE
     Dates: start: 20061116, end: 20061116
  15. NORVASC [Concomitant]
     Dosage: 10 MG, QD
  16. LISINOPRIL [Concomitant]
     Route: 048
  17. VECURONIUM BROMIDE [Concomitant]
     Dosage: UNK
     Dates: start: 20061116
  18. FLOMAX [Concomitant]
     Dosage: 0.4 MG, QD
     Route: 048
  19. DOXAZOSIN MESYLATE [Concomitant]
     Dosage: 8 MG, QD
     Route: 048
  20. ALBUMIN (HUMAN) [Concomitant]
     Route: 042
  21. LASIX [Concomitant]
     Dosage: 80 MG TWICE DAILY
     Route: 048
  22. GLIMEPIRIDE [Concomitant]
     Dosage: 2 MG, TID
     Route: 048
  23. PROTAMINE SULFATE [Concomitant]
     Dosage: 400 MG, UNK
     Route: 042
     Dates: start: 20061116
  24. VANCOMYCIN [Concomitant]
     Dosage: 1 G, UNK
     Route: 042
     Dates: start: 20061116
  25. FRESH FROZEN PLASMA [Concomitant]
     Route: 042
  26. PLATELETS [Concomitant]
     Route: 042
  27. ISOVUE-370 [Concomitant]
     Dosage: 30 CC
  28. CALCITRIOL [Concomitant]
     Dosage: 0.25MCG DAILY
     Route: 048
  29. ASPIRIN [Concomitant]
     Dosage: ASPIRIN
     Route: 048
  30. HEPARIN [Concomitant]
     Dosage: UNK
     Route: 042
     Dates: start: 20061116

REACTIONS (10)
  - ANXIETY [None]
  - INJURY [None]
  - RENAL FAILURE [None]
  - STRESS [None]
  - EMOTIONAL DISTRESS [None]
  - RENAL IMPAIRMENT [None]
  - PAIN [None]
  - RENAL INJURY [None]
  - UNEVALUABLE EVENT [None]
  - FEAR [None]
